FAERS Safety Report 26061423 (Version 1)
Quarter: 2025Q4

REPORT INFORMATION
  Report Type: Spontaneous
  Country: US (occurrence: US)
  Receive Date: 20251118
  Receipt Date: 20251118
  Transmission Date: 20260118
  Serious: No
  Sender: Alpha Cognition
  Company Number: US-ALPHA COGNITION-2025-ZUN-00020

PATIENT

DRUGS (1)
  1. ZUNVEYL [Suspect]
     Active Substance: GALANTAMINE BENZOATE
     Indication: Dementia
     Dosage: 5 MG
     Route: 065
     Dates: start: 20250730

REACTIONS (5)
  - Fall [Unknown]
  - Abnormal behaviour [Unknown]
  - Agitation [Unknown]
  - Anger [Unknown]
  - Personality disorder [Unknown]
